FAERS Safety Report 4692321-2 (Version None)
Quarter: 2005Q2

REPORT INFORMATION
  Report Type: 
  Country: None (occurrence: None)
  Receive Date: 20050614
  Receipt Date: 20050425
  Transmission Date: 20051028
  Serious: Yes (Disabling)
  Sender: FDA-Public Use
  Company Number: 11412

PATIENT
  Age: 16 Year
  Sex: Female

DRUGS (13)
  1. METHOTREXATE [Suspect]
     Indication: ACUTE LYMPHOCYTIC LEUKAEMIA
     Dosage: 12 MG ONCE, IT
     Route: 038
     Dates: start: 20050420
  2. METHOTREXATE [Suspect]
     Indication: NERVOUS SYSTEM DISORDER
     Dosage: 12 MG ONCE, IT
     Route: 038
     Dates: start: 20050420
  3. METHOTREXATE [Suspect]
     Indication: PROPHYLAXIS
     Dosage: 12 MG ONCE, IT
     Route: 038
     Dates: start: 20050420
  4. CYTARABINE [Suspect]
     Indication: ACUTE LYMPHOCYTIC LEUKAEMIA
     Dosage: 100 MG ONCE, IT
     Route: 038
     Dates: start: 20050420
  5. CYTARABINE [Suspect]
     Indication: NERVOUS SYSTEM DISORDER
     Dosage: 100 MG ONCE, IT
     Route: 038
     Dates: start: 20050420
  6. CYTARABINE [Suspect]
     Indication: PROPHYLAXIS
     Dosage: 100 MG ONCE, IT
     Route: 038
     Dates: start: 20050420
  7. DEXAMETHASONE [Concomitant]
  8. ACYCLOVIR [Concomitant]
  9. ALBENDAZOLE [Concomitant]
  10. ACETAMINOPHEN [Concomitant]
  11. ALLOPURINOL [Concomitant]
  12. DEXAMETHASONE [Concomitant]
  13. PANTOPRAZOLE [Concomitant]

REACTIONS (4)
  - HYPOAESTHESIA [None]
  - PAIN [None]
  - PARAESTHESIA [None]
  - PARESIS [None]
